FAERS Safety Report 6442728-8 (Version None)
Quarter: 2009Q4

REPORT INFORMATION
  Report Type: 
  Country: None (occurrence: None)
  Receive Date: 20091117
  Receipt Date: 20090126
  Transmission Date: 20100525
  Serious: Yes (Hospitalization)
  Sender: FDA-Public Use
  Company Number: PHHY2008BR32953

PATIENT
  Sex: Female
  Weight: 82 kg

DRUGS (4)
  1. DICLOFENAC SODIUM [Suspect]
     Dosage: 10 DF, ONCE/SINGLE
     Route: 048
     Dates: start: 20081222
  2. CARBAMAZEPINE [Suspect]
     Dosage: 20 TABLET
     Route: 048
     Dates: start: 20081222
  3. NIMESULIDE [Suspect]
     Dosage: 12 DF
     Dates: start: 20081222
  4. AAS [Suspect]
     Dosage: 4 DF
     Dates: start: 20081222

REACTIONS (5)
  - AGITATION [None]
  - HAEMATEMESIS [None]
  - OVERDOSE [None]
  - SOMNOLENCE [None]
  - VOMITING [None]
